FAERS Safety Report 21805844 (Version 3)
Quarter: 2025Q1

REPORT INFORMATION
  Report Type: Spontaneous
  Country: US (occurrence: US)
  Receive Date: 20230102
  Receipt Date: 20250130
  Transmission Date: 20250408
  Serious: No
  Sender: SANOFI AVENTIS
  Company Number: US-SA-SAC20221230000846

PATIENT
  Age: 78 Year
  Sex: Female

DRUGS (18)
  1. DUPIXENT [Suspect]
     Active Substance: DUPILUMAB
     Indication: Asthma
     Dosage: 300 MG, QOW
     Route: 058
     Dates: start: 20221028
  2. DUPIXENT [Suspect]
     Active Substance: DUPILUMAB
     Dosage: 1 DF, QOW
     Route: 058
     Dates: start: 20220111
  3. CYANOCOBALAMIN [Concomitant]
     Active Substance: CYANOCOBALAMIN
  4. CYANOCOBALAMIN [Concomitant]
     Active Substance: CYANOCOBALAMIN
  5. SIMVASTATIN [Concomitant]
     Active Substance: SIMVASTATIN
  6. SIMVASTATIN [Concomitant]
     Active Substance: SIMVASTATIN
  7. POTASSIUM [Concomitant]
     Active Substance: POTASSIUM
  8. POTASSIUM [Concomitant]
     Active Substance: POTASSIUM
  9. LOSARTAN [Concomitant]
     Active Substance: LOSARTAN
  10. LOSARTAN [Concomitant]
     Active Substance: LOSARTAN
  11. KLONOPIN [Concomitant]
     Active Substance: CLONAZEPAM
  12. KLONOPIN [Concomitant]
     Active Substance: CLONAZEPAM
  13. GABAPENTIN [Concomitant]
     Active Substance: GABAPENTIN
  14. GABAPENTIN [Concomitant]
     Active Substance: GABAPENTIN
  15. CELECOXIB [Concomitant]
     Active Substance: CELECOXIB
  16. CELECOXIB [Concomitant]
     Active Substance: CELECOXIB
  17. ALBUTEROL [Concomitant]
     Active Substance: ALBUTEROL
  18. ALBUTEROL [Concomitant]
     Active Substance: ALBUTEROL

REACTIONS (3)
  - Asthma [Recovering/Resolving]
  - Dyspnoea [Unknown]
  - Inappropriate schedule of product administration [Unknown]

NARRATIVE: CASE EVENT DATE: 20221227
